FAERS Safety Report 8118220-1 (Version None)
Quarter: 2011Q4

REPORT INFORMATION
  Report Type: 
  Country: None (occurrence: None)
  Receive Date: 20111227
  Receipt Date: 20111101
  Transmission Date: 20120403
  Serious: No
  Sender: FDA-Public Use
  Company Number: PHEH2011US06631

PATIENT
  Age: 44 Year
  Sex: Female
  Weight: 81.6 kg

DRUGS (6)
  1. ASPIRIN [Concomitant]
  2. DIAZEPAM [Concomitant]
  3. GILENYA [Suspect]
     Indication: MULTIPLE SCLEROSIS
     Dosage: 0.5 MG, QD, ORAL
     Route: 048
     Dates: start: 20111004
  4. CRESTOR [Concomitant]
  5. PAROXETINE HCL [Concomitant]
  6. ENAZEPRIL [Concomitant]

REACTIONS (4)
  - HEADACHE [None]
  - DYSURIA [None]
  - POLLAKIURIA [None]
  - URINARY TRACT INFECTION [None]
